FAERS Safety Report 6106937-X (Version None)
Quarter: 2009Q1

REPORT INFORMATION
  Report Type: 
  Country: None (occurrence: None)
  Receive Date: 20090305
  Receipt Date: 20090305
  Transmission Date: 20090719
  Serious: Yes (Hospitalization)
  Sender: FDA-Public Use
  Company Number: None

PATIENT
  Age: 62 Year
  Sex: Female
  Weight: 72.5755 kg

DRUGS (1)
  1. ISOSORBIDE MONONITRATE [Suspect]
     Indication: CHEST PAIN
     Dosage: SUPPOSE TO BE 30MG 1 OR 2 X DAILY
     Dates: start: 20060101, end: 20080101

REACTIONS (6)
  - ACCIDENTAL OVERDOSE [None]
  - CHEST DISCOMFORT [None]
  - DIZZINESS [None]
  - DYSPNOEA [None]
  - PRODUCT QUALITY ISSUE [None]
  - SYNCOPE [None]
